FAERS Safety Report 19037065 (Version 1)
Quarter: 2021Q1

REPORT INFORMATION
  Report Type: Spontaneous
  Country: CA (occurrence: CA)
  Receive Date: 20210322
  Receipt Date: 20210322
  Transmission Date: 20210420
  Serious: Yes (Hospitalization, Other)
  Sender: FDA-Public Use
  Company Number: CA-CELLTRION INC.-2021CA003650

PATIENT

DRUGS (3)
  1. MEZAVANT [Concomitant]
     Active Substance: MESALAMINE
     Dosage: 1 DF
     Route: 065
  2. METHYLPREDNISOLONE. [Concomitant]
     Active Substance: METHYLPREDNISOLONE
     Dosage: 30MG EVERY 12 HOURS
     Route: 065
  3. INFLECTRA [Suspect]
     Active Substance: INFLIXIMAB-DYYB
     Indication: PROCTITIS
     Dosage: 300 MG (DOSAGE RECEIVED IN HOSPITAL)
     Route: 042
     Dates: start: 20201209, end: 20201209

REACTIONS (4)
  - Post procedural discharge [Unknown]
  - Off label use [Unknown]
  - Proctitis [Unknown]
  - Pancreatitis [Unknown]
